FAERS Safety Report 8258925-5 (Version None)
Quarter: 2012Q2

REPORT INFORMATION
  Report Type: 
  Country: None (occurrence: None)
  Receive Date: 20120404
  Receipt Date: 20120330
  Transmission Date: 20120825
  Serious: Yes (Other)
  Sender: FDA-Public Use
  Company Number: US-BAYER-2012-011269

PATIENT
  Age: 44 Year
  Sex: Female
  Weight: 86.168 kg

DRUGS (2)
  1. MAGNEVIST [Suspect]
     Indication: NUCLEAR MAGNETIC RESONANCE IMAGING
     Dosage: 18 ML, ONCE
     Route: 042
     Dates: start: 20120201, end: 20120201
  2. MAGNEVIST [Suspect]
     Indication: SPINAL OPERATION

REACTIONS (1)
  - DYSPNOEA [None]
